FAERS Safety Report 7526196-0 (Version None)
Quarter: 2011Q2

REPORT INFORMATION
  Report Type: 
  Country: None (occurrence: None)
  Receive Date: 20110606
  Receipt Date: 20101005
  Transmission Date: 20111010
  Serious: No
  Sender: FDA-Public Use
  Company Number: US-BRISTOL-MYERS SQUIBB COMPANY-15319270

PATIENT
  Age: 56 Year
  Sex: Male

DRUGS (6)
  1. GUAIFENESIN [Suspect]
  2. VIRAMUNE [Suspect]
  3. VIRACEPT [Suspect]
  4. EFAVIRENZ [Suspect]
     Route: 048
  5. KALETRA [Suspect]
  6. TRUVADA [Suspect]

REACTIONS (1)
  - ADVERSE EVENT [None]
